FAERS Safety Report 10374770 (Version 1)
Quarter: 2014Q1

REPORT INFORMATION
  Report Type: Spontaneous
  Country: US (occurrence: None)
  Receive Date: 20140306
  Receipt Date: 20140306
  Transmission Date: 20141002
  Serious: Yes (Other)
  Sender: FDA-Public Use
  Company Number: 163-21880-13121915

PATIENT
  Age: 48 Year
  Sex: Male
  Weight: 97.52 kg

DRUGS (6)
  1. REVLIMID [Suspect]
     Indication: PLASMA CELL MYELOMA
     Route: 048
     Dates: start: 20131031, end: 20131103
  2. LISINOPRIL [Concomitant]
  3. INSULIN [Concomitant]
  4. GLIPIZIDE [Concomitant]
  5. SIMVASTATIN [Concomitant]
  6. OXYCONTIN (OXYCODONE HYDROCHLORIDE) [Concomitant]

REACTIONS (3)
  - Swelling face [None]
  - Rash [None]
  - Pruritus [None]
